FAERS Safety Report 5017707-8 (Version None)
Quarter: 2006Q2

REPORT INFORMATION
  Report Type: 
  Country: None (occurrence: None)
  Receive Date: 20060605
  Receipt Date: 20060524
  Transmission Date: 20061013
  Serious: Yes (Other)
  Sender: FDA-Public Use
  Company Number: US-BRISTOL-MYERS SQUIBB COMPANY-13389648

PATIENT
  Age: 61 Year
  Sex: Female
  Weight: 72 kg

DRUGS (16)
  1. ORENCIA [Suspect]
     Indication: RHEUMATOID ARTHRITIS
     Route: 042
     Dates: start: 20060519
  2. PREDNISONE [Concomitant]
  3. FLECAINIDE ACETATE [Concomitant]
  4. METHOTREXATE [Concomitant]
  5. ZELNORM [Concomitant]
  6. METOCLOPRAMIDE [Concomitant]
  7. CALCIUM CITRATE [Concomitant]
  8. PROTONIX [Concomitant]
  9. ECOTRIN [Concomitant]
  10. FOLTX [Concomitant]
  11. KLOR-CON [Concomitant]
  12. LASIX [Concomitant]
  13. PRAVACHOL [Concomitant]
  14. DILTIAZEM HCL [Concomitant]
  15. BONIVA [Concomitant]
     Route: 042
  16. INSULIN [Concomitant]
     Dosage: DOSAGE FORM = 50-60 UNITS

REACTIONS (1)
  - HYPOGLYCAEMIA [None]
